FAERS Safety Report 13472105 (Version 2)
Quarter: 2017Q2

REPORT INFORMATION
  Report Type: Spontaneous
  Country: IT (occurrence: IT)
  Receive Date: 20170424
  Receipt Date: 20170505
  Transmission Date: 20170830
  Serious: Yes (Death, Other)
  Sender: FDA-Public Use
  Company Number: IT-ASTRAZENECA-2017SE41538

PATIENT
  Age: 55 Year
  Sex: Female

DRUGS (2)
  1. OSIMERTINIB [Suspect]
     Active Substance: OSIMERTINIB
     Route: 048
     Dates: start: 201504
  2. GEFITINIB [Suspect]
     Active Substance: GEFITINIB
     Route: 048
     Dates: start: 201305, end: 201410

REACTIONS (10)
  - Metastases to meninges [Unknown]
  - General physical health deterioration [Unknown]
  - Nausea [Unknown]
  - Onycholysis [Unknown]
  - Vomiting [Unknown]
  - Death [Fatal]
  - Neutropenia [Unknown]
  - Rash [Unknown]
  - Malignant neoplasm progression [Unknown]
  - Diarrhoea [Unknown]

NARRATIVE: CASE EVENT DATE: 201305
